FAERS Safety Report 16730740 (Version 1)
Quarter: 2019Q4

REPORT INFORMATION
  Report Type: Spontaneous
  Country: US (occurrence: US)
  Receive Date: 20190822
  Receipt Date: 20190822
  Transmission Date: 20200122
  Serious: Yes (Other)
  Sender: FDA-Public Use
  Company Number: None

PATIENT
  Age: 60 Year
  Sex: Male
  Weight: 117 kg

DRUGS (2)
  1. FLONASE ALLERGY RELIEF [Suspect]
     Active Substance: FLUTICASONE PROPIONATE
     Indication: NASAL CONGESTION
     Dosage: ?          QUANTITY:2 SPRAY(S);OTHER ROUTE:NASAL SPRAY?
     Route: 045
     Dates: start: 20190601, end: 20190810
  2. ROUTINE MULTIVITAMIN [Concomitant]

REACTIONS (4)
  - Tachycardia [None]
  - Atrial fibrillation [None]
  - Ventricular extrasystoles [None]
  - Bradycardia [None]

NARRATIVE: CASE EVENT DATE: 20190815
